FAERS Safety Report 4273195-0 (Version None)
Quarter: 2004Q1

REPORT INFORMATION
  Report Type: 
  Country: None (occurrence: None)
  Receive Date: 20040116
  Receipt Date: 20040108
  Transmission Date: 20041129
  Serious: Yes (Hospitalization)
  Sender: FDA-Public Use
  Company Number: PHHO2004BR00602

PATIENT
  Age: 55 Year
  Sex: Male

DRUGS (2)
  1. GLEEVEC [Suspect]
     Indication: CHRONIC MYELOID LEUKAEMIA
     Dosage: 600 MG, QD
     Route: 048
     Dates: start: 20030916, end: 20031223
  2. GARDENAL [Concomitant]
     Dosage: 100 MG, QD

REACTIONS (4)
  - INFECTION [None]
  - PRURITUS [None]
  - SCAB [None]
  - SKIN DESQUAMATION [None]
